FAERS Safety Report 9931085 (Version 2)
Quarter: 2014Q1

REPORT INFORMATION
  Report Type: Report from Study
  Country: BE (occurrence: BE)
  Receive Date: 20140227
  Receipt Date: 20140303
  Transmission Date: 20141002
  Serious: Yes (Hospitalization)
  Sender: FDA-Public Use
  Company Number: PHHO2014BE002912

PATIENT
  Sex: 0

DRUGS (11)
  1. CGS 20267 [Suspect]
     Indication: BREAST CANCER
     Dosage: 2.5 MG, QD
     Route: 048
     Dates: start: 20090210
  2. CARVEDILOL [Suspect]
     Indication: BLOOD PRESSURE
     Dosage: 25 MG, Q12H
     Route: 048
     Dates: start: 20090115, end: 20140209
  3. ALPHA ^LEO^ [Concomitant]
     Dosage: 2.5 MG, QD
     Route: 048
     Dates: start: 20100203
  4. CORDARONE [Concomitant]
     Dosage: 200 MG, QD
     Route: 048
     Dates: start: 20080702
  5. INEGY [Concomitant]
     Dosage: 40 MG, QD
     Route: 048
     Dates: start: 20130109
  6. FORZATEN [Concomitant]
     Dosage: 25/5 MG/ D
     Route: 048
     Dates: start: 20100203
  7. CALCIUM ^SANDOZ^ [Concomitant]
     Dosage: 1 DF, QD
     Route: 048
     Dates: start: 20130206
  8. TRAZOLAN [Concomitant]
     Dosage: 100MG 1/2 COL D
     Route: 048
     Dates: start: 20030802
  9. FOSAVANCE [Concomitant]
     Dosage: 70 MG, QW
     Route: 048
     Dates: start: 20090115
  10. MAREVAN [Concomitant]
     Dosage: 3/4 COL D
     Route: 048
     Dates: start: 20080702
  11. CETRIZINE [Concomitant]
     Indication: RASH
     Dosage: 10 MG, UNK
     Route: 048
     Dates: start: 20140213

REACTIONS (2)
  - Vertigo [Recovered/Resolved]
  - General physical health deterioration [Recovered/Resolved]
